FAERS Safety Report 23971086 (Version 2)
Quarter: 2024Q2

REPORT INFORMATION
  Report Type: Spontaneous
  Country: IT (occurrence: IT)
  Receive Date: 20240613
  Receipt Date: 20240628
  Transmission Date: 20240716
  Serious: Yes (Disabling)
  Sender: FDA-Public Use
  Company Number: IT-SUN PHARMACEUTICAL INDUSTRIES LTD-2024RR-450453

PATIENT
  Sex: Male

DRUGS (7)
  1. ODOMZO [Suspect]
     Active Substance: SONIDEGIB
     Indication: Basal cell carcinoma
     Dosage: 200 MILLIGRAM, UNK
     Route: 048
     Dates: start: 20231117, end: 20231230
  2. ODOMZO [Suspect]
     Active Substance: SONIDEGIB
     Dosage: UNK
     Route: 065
     Dates: start: 20240502
  3. FUROSEMIDE [Concomitant]
     Active Substance: FUROSEMIDE
     Indication: Product used for unknown indication
     Dosage: 25 MILLIGRAM, 1 TABLET IN THE MORNING
     Route: 048
  4. METOPROLOL [Concomitant]
     Active Substance: METOPROLOL
     Indication: Product used for unknown indication
     Dosage: 100 MILLIGRAM, HALF CPS MORNING AND EVENING
     Route: 048
  5. TAMSULOSIN [Concomitant]
     Active Substance: TAMSULOSIN
     Indication: Product used for unknown indication
     Dosage: 4 MILLIGRAM, 1 TABLET IN THE EVENING
     Route: 048
  6. Forsiga [Concomitant]
     Indication: Product used for unknown indication
     Dosage: 10 MILLIGRAM, 1 TABLET AT 12:00 PM
     Route: 048
  7. Carelto [Concomitant]
     Indication: Product used for unknown indication
     Dosage: 15 MILLIGRAM, AT 1 PM, 1 TABLET
     Route: 048

REACTIONS (2)
  - Myalgia [Not Recovered/Not Resolved]
  - Muscular weakness [Not Recovered/Not Resolved]

NARRATIVE: CASE EVENT DATE: 20240502
